FAERS Safety Report 15301867 (Version 1)
Quarter: 2018Q3

REPORT INFORMATION
  Report Type: Spontaneous
  Country: US (occurrence: US)
  Receive Date: 20180821
  Receipt Date: 20180821
  Transmission Date: 20181010
  Serious: No
  Sender: FDA-Public Use
  Company Number: US-MANNKIND CORPORATION-2018MK000084

PATIENT
  Age: 28 Year
  Sex: Female
  Weight: 72.64 kg

DRUGS (4)
  1. AFREZZA [Suspect]
     Active Substance: INSULIN HUMAN
     Indication: DIABETES MELLITUS
     Dates: start: 201708
  2. AFREZZA [Suspect]
     Active Substance: INSULIN HUMAN
     Dates: start: 201708
  3. SYNTHROID [Concomitant]
     Active Substance: LEVOTHYROXINE SODIUM
     Indication: HYPOTHYROIDISM
  4. TRESIBA [Concomitant]
     Active Substance: INSULIN DEGLUDEC
     Indication: DIABETES MELLITUS
     Dosage: 23?27 UNITS
     Dates: start: 201708

REACTIONS (1)
  - Dawn phenomenon [Recovered/Resolved]

NARRATIVE: CASE EVENT DATE: 20180501
